FAERS Safety Report 15609959 (Version 2)
Quarter: 2019Q1

REPORT INFORMATION
  Report Type: Spontaneous
  Country: US (occurrence: US)
  Receive Date: 20181113
  Receipt Date: 20190103
  Transmission Date: 20190417
  Serious: No
  Sender: FDA-Public Use
  Company Number: US-ASTRAZENECA-2018SF45051

PATIENT
  Sex: Female

DRUGS (1)
  1. SYMBICORT [Suspect]
     Active Substance: BUDESONIDE\FORMOTEROL FUMARATE DIHYDRATE
     Dosage: 160/4.5 MCG, 2 PUFFS, TWICE A DAY
     Route: 055

REACTIONS (4)
  - Dyspnoea [Unknown]
  - Product dose omission [Unknown]
  - Product quality issue [Unknown]
  - Intentional device misuse [Unknown]
